FAERS Safety Report 11202647 (Version 1)
Quarter: 2015Q2

REPORT INFORMATION
  Report Type: Spontaneous
  Country: US (occurrence: US)
  Receive Date: 20150619
  Receipt Date: 20150619
  Transmission Date: 20150821
  Serious: Yes (Other)
  Sender: FDA-Public Use
  Company Number: US-JNJFOC-20150609680

PATIENT
  Sex: Male

DRUGS (1)
  1. XARELTO [Suspect]
     Active Substance: RIVAROXABAN
     Indication: PRODUCT USED FOR UNKNOWN INDICATION
     Route: 048

REACTIONS (9)
  - Musculoskeletal disorder [Unknown]
  - Oedema [Unknown]
  - Contusion [Unknown]
  - Atrial fibrillation [Unknown]
  - Anxiety [Unknown]
  - Arthralgia [Unknown]
  - Weight increased [Unknown]
  - Epistaxis [Unknown]
  - Myalgia [Unknown]
